FAERS Safety Report 10108871 (Version 1)
Quarter: 2014Q2

REPORT INFORMATION
  Report Type: Spontaneous
  Country: US (occurrence: None)
  Receive Date: 20140423
  Receipt Date: 20140423
  Transmission Date: 20141212
  Serious: Yes (Hospitalization)
  Sender: FDA-Public Use
  Company Number: AUR-APL-2014-04764

PATIENT
  Age: 46 Year
  Sex: Female

DRUGS (1)
  1. AMOXICILLIN+CLAVULANIC ACID (CLAVULANIC ACID, AMOXICILLIN) [Suspect]
     Indication: URINARY TRACT INFECTION

REACTIONS (11)
  - Pyrexia [None]
  - Flank pain [None]
  - White blood cell count decreased [None]
  - Neutrophil percentage increased [None]
  - Haemoglobin decreased [None]
  - Platelet count decreased [None]
  - Blood bilirubin abnormal [None]
  - Nitrite urine present [None]
  - Raoultella test positive [None]
  - Pyelonephritis [None]
  - Pathogen resistance [None]
